FAERS Safety Report 8553502-0 (Version None)
Quarter: 2012Q3

REPORT INFORMATION
  Report Type: 
  Country: None (occurrence: None)
  Receive Date: 20120731
  Receipt Date: 20120727
  Transmission Date: 20120928
  Serious: Yes (Other)
  Sender: FDA-Public Use
  Company Number: PE-PFIZER INC-2012158082

PATIENT
  Age: 77 Year
  Sex: Female

DRUGS (3)
  1. MICARDIS [Concomitant]
     Route: 048
  2. ATENOLOL [Concomitant]
     Route: 048
  3. NORVASC [Suspect]
     Indication: HYPERTENSION
     Dosage: 5 MG, 1X/DAY
     Route: 048
     Dates: start: 20090101

REACTIONS (1)
  - GASTRIC DISORDER [None]
